FAERS Safety Report 4429991-X (Version None)
Quarter: 2004Q3

REPORT INFORMATION
  Report Type: 
  Country: None (occurrence: None)
  Receive Date: 20040816
  Receipt Date: 20040803
  Transmission Date: 20050211
  Serious: Yes (Hospitalization, Other)
  Sender: FDA-Public Use
  Company Number: 2004052447

PATIENT
  Age: 59 Year
  Sex: Male

DRUGS (3)
  1. AZITROMAX (AZITHROMYCIN) [Suspect]
     Indication: PYREXIA
     Dosage: 250 MG (250 MG, 1 IN 1 D), ORAL
     Route: 048
     Dates: start: 20030305, end: 20030311
  2. DOXYCYCLINE MONOHYDRATE (DOXYCYCLINE MONOHYDRATE) [Concomitant]
  3. NAPROXEN [Concomitant]

REACTIONS (15)
  - ABDOMINAL PAIN [None]
  - BLOOD ALKALINE PHOSPHATASE ABNORMAL [None]
  - C-REACTIVE PROTEIN [None]
  - CANDIDIASIS [None]
  - DYSARTHRIA [None]
  - EPISTAXIS [None]
  - FIBRIN D DIMER INCREASED [None]
  - HAEMATOMA [None]
  - HAEMOGLOBIN ABNORMAL [None]
  - HEPATIC CYST [None]
  - INTERNATIONAL NORMALISED RATIO DECREASED [None]
  - ODYNOPHAGIA [None]
  - OROPHARYNGEAL SWELLING [None]
  - PAIN [None]
  - STAPHYLOCOCCAL INFECTION [None]
